FAERS Safety Report 5115144-9 (Version None)
Quarter: 2006Q3

REPORT INFORMATION
  Report Type: 
  Country: None (occurrence: None)
  Receive Date: 20060925
  Receipt Date: 20060925
  Transmission Date: 20061208
  Serious: Yes (Hospitalization)
  Sender: FDA-Public Use
  Company Number: None

PATIENT
  Age: 78 Year
  Sex: Male
  Weight: 53.5 kg

DRUGS (7)
  1. DACOGEN [Suspect]
     Indication: CHRONIC MYELOMONOCYTIC LEUKAEMIA
     Dosage: 25 MG Q 8 HOURS IVPB
     Route: 040
     Dates: start: 20060912
  2. DACOGEN [Suspect]
     Indication: CHRONIC MYELOMONOCYTIC LEUKAEMIA
     Dosage: 25 MG Q 8 HOURS IVPB
     Route: 040
     Dates: start: 20060913
  3. DACOGEN [Suspect]
     Indication: CHRONIC MYELOMONOCYTIC LEUKAEMIA
     Dosage: 25 MG Q 8 HOURS IVPB
     Route: 040
     Dates: start: 20060914
  4. DACOGEN [Suspect]
     Indication: CHRONIC MYELOMONOCYTIC LEUKAEMIA
     Dosage: 25 MG Q 8 HOURS IVPB
     Route: 040
     Dates: start: 20060915
  5. ZOFRAN [Concomitant]
  6. COMPAZINE [Concomitant]
  7. DEXAMETHASONE TAB [Concomitant]

REACTIONS (4)
  - ATRIAL FIBRILLATION [None]
  - HEART RATE IRREGULAR [None]
  - HYPOTENSION [None]
  - UNEVALUABLE EVENT [None]
